FAERS Safety Report 17246108 (Version 1)
Quarter: 2020Q1

REPORT INFORMATION
  Report Type: Spontaneous
  Country: US (occurrence: US)
  Receive Date: 20200108
  Receipt Date: 20200108
  Transmission Date: 20200409
  Serious: No
  Sender: FDA-Public Use
  Company Number: US-TEVA-2020-US-1166431

PATIENT
  Sex: Female
  Weight: 72.64 kg

DRUGS (1)
  1. AUSTEDO [Suspect]
     Active Substance: DEUTETRABENAZINE
     Indication: TARDIVE DYSKINESIA
     Dosage: 18 MILLIGRAM DAILY;
     Route: 048
     Dates: start: 20191201

REACTIONS (4)
  - Agitation [Unknown]
  - Crying [Unknown]
  - Hyperhidrosis [Unknown]
  - Restlessness [Unknown]
